FAERS Safety Report 8595880-2 (Version None)
Quarter: 2012Q3

REPORT INFORMATION
  Report Type: 
  Country: None (occurrence: None)
  Receive Date: 20120815
  Receipt Date: 20120807
  Transmission Date: 20120928
  Serious: No
  Sender: FDA-Public Use
  Company Number: US-ASTRAZENECA-2012SE55624

PATIENT
  Sex: Female

DRUGS (1)
  1. SYMBICORT [Suspect]
     Dosage: ONE PUFF BID
     Route: 055
     Dates: start: 20110801

REACTIONS (2)
  - TREATMENT NONCOMPLIANCE [None]
  - OFF LABEL USE [None]
